FAERS Safety Report 21804462 (Version 2)
Quarter: 2023Q1

REPORT INFORMATION
  Report Type: Spontaneous
  Country: CN (occurrence: CN)
  Receive Date: 20230102
  Receipt Date: 20230131
  Transmission Date: 20230417
  Serious: Yes (Other)
  Sender: FDA-Public Use
  Company Number: CN-ABBVIE-4253019

PATIENT

DRUGS (5)
  1. VENCLEXTA [Suspect]
     Active Substance: VENETOCLAX
     Indication: Acute myeloid leukaemia
     Dosage: ON DAY 1
     Route: 048
  2. VENCLEXTA [Suspect]
     Active Substance: VENETOCLAX
     Indication: Acute myeloid leukaemia
     Dosage: DAY 2
     Route: 048
  3. VENCLEXTA [Suspect]
     Active Substance: VENETOCLAX
     Indication: Acute myeloid leukaemia
     Dosage: ON DAY 3 AND MAINTAINED AFTER REACHING THE TARGET DOSE, FOR 21 CONSECUTIVE DAYS.
     Route: 048
  4. AZACITIDINE [Suspect]
     Active Substance: AZACITIDINE
     Indication: Acute myeloid leukaemia
     Dosage: FOR 7 CONSECUTIVE DAYS
     Route: 065
  5. DECITABINE [Suspect]
     Active Substance: DECITABINE
     Indication: Acute myeloid leukaemia
     Dosage: FOR 5 CONSECUTIVE DAYS
     Route: 065

REACTIONS (11)
  - Myelosuppression [Recovering/Resolving]
  - Gastrointestinal disorder [Recovering/Resolving]
  - Sepsis [Recovering/Resolving]
  - Hepatic function abnormal [Recovering/Resolving]
  - Rash [Recovering/Resolving]
  - Nausea [Recovering/Resolving]
  - Urinary tract infection [Recovering/Resolving]
  - Asthenia [Unknown]
  - Pneumonia [Recovering/Resolving]
  - Mouth ulceration [Recovering/Resolving]
  - Vomiting [Recovering/Resolving]
